FAERS Safety Report 9280903 (Version 2)
Quarter: 2013Q2

REPORT INFORMATION
  Report Type: Spontaneous
  Country: US (occurrence: US)
  Receive Date: 20130509
  Receipt Date: 20130620
  Transmission Date: 20140414
  Serious: Yes (Death, Hospitalization)
  Sender: FDA-Public Use
  Company Number: US-BRISTOL-MYERS SQUIBB COMPANY-18856450

PATIENT
  Age: 67 Year
  Sex: Male

DRUGS (8)
  1. BARACLUDE [Suspect]
     Indication: HEPATITIS B
     Route: 048
     Dates: start: 20090905, end: 20130428
  2. MEPRON [Concomitant]
  3. DEPAKOTE [Concomitant]
  4. PEPCID [Concomitant]
  5. FOLIC ACID [Concomitant]
  6. NEURONTIN [Concomitant]
  7. LANTUS [Concomitant]
  8. PROGRAF [Concomitant]

REACTIONS (1)
  - Hepatic encephalopathy [Fatal]
